FAERS Safety Report 10567857 (Version 2)
Quarter: 2014Q4

REPORT INFORMATION
  Report Type: Spontaneous
  Country: CH (occurrence: None)
  Receive Date: 20141104
  Receipt Date: 20141212
  Transmission Date: 20150529
  Serious: Yes (Death)
  Sender: FDA-Public Use
  Company Number: 20140696

PATIENT
  Age: 60 Year
  Sex: Female

DRUGS (6)
  1. VANCOMYCIN [Suspect]
     Active Substance: VANCOMYCIN
     Indication: PREMEDICATION
     Route: 042
     Dates: start: 20140929, end: 20140929
  2. FUROSEMIDE. [Concomitant]
     Active Substance: FUROSEMIDE
  3. PREVICSAN (FLUINDIONE) [Concomitant]
  4. ATARAX [Suspect]
     Active Substance: HYDROXYZINE\HYDROXYZINE HYDROCHLORIDE
     Indication: ANAEMIA
     Dosage: SINGLE DOSE
     Route: 048
     Dates: start: 20140929, end: 20140929
  5. SPIRONOLACTONE. [Concomitant]
     Active Substance: SPIRONOLACTONE
  6. FERINJECT [Suspect]
     Active Substance: FERRIC CARBOXYMALTOSE
     Indication: ANAEMIA
     Route: 042
     Dates: start: 20140929, end: 20140929

REACTIONS (3)
  - Cardiac arrest [None]
  - Chest pain [None]
  - Bronchospasm [None]

NARRATIVE: CASE EVENT DATE: 20140929
